FAERS Safety Report 5576937-7 (Version None)
Quarter: 2007Q4

REPORT INFORMATION
  Report Type: 
  Country: None (occurrence: None)
  Receive Date: 20071228
  Receipt Date: 20071212
  Transmission Date: 20080405
  Serious: Yes (Hospitalization)
  Sender: FDA-Public Use
  Company Number: US-BRISTOL-MYERS SQUIBB COMPANY-12217014

PATIENT
  Age: 48 Year
  Sex: Male

DRUGS (8)
  1. STOCRIN CAPS [Suspect]
     Indication: ACQUIRED IMMUNODEFICIENCY SYNDROME
     Dosage: STOPPED 08-MAR-2002, RESTARTED 05-APR-2003, STOPPED 13-APR-2003, RESTARTED 25-APR-2003 AND CONT.
     Route: 048
     Dates: start: 20010419
  2. ZERIT [Suspect]
     Indication: ACQUIRED IMMUNODEFICIENCY SYNDROME
     Route: 048
     Dates: start: 20011001, end: 20020308
  3. EPIVIR [Suspect]
     Indication: ACQUIRED IMMUNODEFICIENCY SYNDROME
     Dosage: D/C 08MAR02;RESTARTED ON 05APR03 + D/C 13APR03(150MGBID);RESTARTED 25APR03 + D/C 14DEC05(150MGBID).
     Route: 048
     Dates: start: 20011001, end: 20051214
  4. COMBIVIR [Suspect]
     Indication: ACQUIRED IMMUNODEFICIENCY SYNDROME
     Dosage: 1 DOSAGE FORM = 1 TABLET
     Route: 048
     Dates: start: 20010419, end: 20010930
  5. DEPAKENE [Concomitant]
     Route: 048
  6. LASIX [Concomitant]
     Dosage: INTERRUPTED FROM 03/11/02 TO 03/13/02
     Route: 048
     Dates: start: 20020309
  7. ZIDOVUDINE [Concomitant]
     Dates: start: 20030405, end: 20030413
  8. ABACAVIR [Concomitant]
     Dates: start: 20030425, end: 20051214

REACTIONS (6)
  - BLOOD URIC ACID INCREASED [None]
  - CHOLELITHIASIS [None]
  - DIZZINESS [None]
  - HAEMOGLOBIN DECREASED [None]
  - HEPATIC FUNCTION ABNORMAL [None]
  - HYPERLACTACIDAEMIA [None]
